FAERS Safety Report 5514778-7 (Version None)
Quarter: 2007Q4

REPORT INFORMATION
  Report Type: 
  Country: None (occurrence: None)
  Receive Date: 20071113
  Receipt Date: 20071023
  Transmission Date: 20080405
  Serious: Yes (Hospitalization)
  Sender: FDA-Public Use
  Company Number: NO-SHR-NO-2007-041986

PATIENT
  Age: 33 Year
  Sex: Female

DRUGS (1)
  1. YASMIN [Suspect]
     Indication: CONTRACEPTION
     Dosage: STOPPED BECAUSE OF NUMBNESS IN L
     Route: 048
     Dates: start: 20070901, end: 20071011

REACTIONS (2)
  - HYPOAESTHESIA [None]
  - PERIPHERAL EMBOLISM [None]
